FAERS Safety Report 10132674 (Version 1)
Quarter: 2014Q2

REPORT INFORMATION
  Report Type: Spontaneous
  Country: US (occurrence: US)
  Receive Date: 20140428
  Receipt Date: 20140428
  Transmission Date: 20141212
  Serious: No
  Sender: FDA-Public Use
  Company Number: US-MALLINCKRODT-T201400030

PATIENT
  Age: 55 Year
  Sex: Female

DRUGS (7)
  1. HYDROCODONE/ACETAMINOPHEN [Suspect]
     Indication: BACK PAIN
     Dosage: 10/325 MG, ONE TABLET TID
     Route: 048
     Dates: start: 20140103, end: 20140107
  2. LEVOTHYROXINE [Concomitant]
     Indication: HYPOTHYROIDISM
     Dosage: UNK
     Route: 065
  3. LYRICA [Concomitant]
     Indication: FIBROMYALGIA
     Dosage: UNK
  4. ASPIRIN [Concomitant]
     Dosage: UNK
  5. OMEPRAZOLE [Concomitant]
     Indication: GASTROOESOPHAGEAL REFLUX DISEASE
     Dosage: UNK
  6. PROGESTERONE [Concomitant]
     Indication: HORMONE REPLACEMENT THERAPY
     Dosage: UNK
  7. DIVIGEL [Concomitant]
     Indication: MENOPAUSE
     Dosage: UNK

REACTIONS (3)
  - Gingival oedema [Recovered/Resolved]
  - Eye pain [Recovered/Resolved]
  - Headache [Recovered/Resolved]
